FAERS Safety Report 5466282-2 (Version None)
Quarter: 2007Q3

REPORT INFORMATION
  Report Type: 
  Country: None (occurrence: None)
  Receive Date: 20070924
  Receipt Date: 20070912
  Transmission Date: 20080115
  Serious: Yes (Other)
  Sender: FDA-Public Use
  Company Number: US-PFIZER INC-2007077845

PATIENT
  Sex: Female

DRUGS (4)
  1. XANAX [Suspect]
     Indication: ANXIETY
     Route: 048
  2. PERCOCET [Suspect]
     Indication: PAIN
     Route: 048
     Dates: start: 20050101, end: 20070801
  3. ADDERALL 20 [Suspect]
     Indication: ATTENTION DEFICIT/HYPERACTIVITY DISORDER
     Route: 048
  4. ENDOCET [Suspect]
     Indication: PAIN
     Route: 048

REACTIONS (2)
  - ABORTION SPONTANEOUS [None]
  - RASH PRURITIC [None]
